FAERS Safety Report 16378765 (Version 1)
Quarter: 2019Q2

REPORT INFORMATION
  Report Type: Spontaneous
  Country: US (occurrence: US)
  Receive Date: 20190531
  Receipt Date: 20190531
  Transmission Date: 20190711
  Serious: No
  Sender: FDA-Public Use
  Company Number: US-MYLANLABS-2019M1050022

PATIENT
  Age: 70 Year
  Sex: Female

DRUGS (4)
  1. ESTRADIOL MYLAN [Suspect]
     Active Substance: ESTRADIOL
     Indication: NIGHT SWEATS
  2. TESTOSTERONE. [Concomitant]
     Active Substance: TESTOSTERONE
     Route: 061
  3. ESTRADIOL MYLAN [Suspect]
     Active Substance: ESTRADIOL
     Indication: HOT FLUSH
     Dosage: UNK DOSAGE FORM
  4. PROGESTERONE. [Concomitant]
     Active Substance: PROGESTERONE
     Dosage: UNK

REACTIONS (1)
  - Breast tenderness [Not Recovered/Not Resolved]
